FAERS Safety Report 4851792-9 (Version None)
Quarter: 2005Q4

REPORT INFORMATION
  Report Type: 
  Country: None (occurrence: None)
  Receive Date: 20051209
  Receipt Date: 20051124
  Transmission Date: 20060501
  Serious: Yes (Hospitalization)
  Sender: FDA-Public Use
  Company Number: 12952

PATIENT
  Age: 23 Year
  Sex: Female

DRUGS (4)
  1. CARBOPLATIN [Suspect]
     Dates: start: 20000601, end: 20001101
  2. MESNA [Suspect]
     Dates: start: 20000601, end: 20001101
  3. ADRIAMYCIN /00330901/ [Suspect]
     Dates: start: 20000601, end: 20001101
  4. IFOSFAMIDE [Suspect]
     Dates: start: 20000601, end: 20001101

REACTIONS (2)
  - FEBRILE NEUTROPENIA [None]
  - VULVAL CELLULITIS [None]
